FAERS Safety Report 9631124 (Version 1)
Quarter: 2013Q4

REPORT INFORMATION
  Report Type: Spontaneous
  Country: BE (occurrence: None)
  Receive Date: 20131016
  Receipt Date: 20131016
  Transmission Date: 20140711
  Serious: Yes (Death)
  Sender: FDA-Public Use
  Company Number: BE-2013-3468

PATIENT
  Sex: 0

DRUGS (2)
  1. VINORELBINE [Suspect]
     Indication: NON-SMALL CELL LUNG CANCER
     Dosage: DAYS 1 AND 8 OR DAYS 8 AND 29, CYCLICAL (1/21)
     Route: 042
  2. GEMCITABINE (GEMCITABINE) [Suspect]
     Dosage: CYCLICAL (1/21)
     Route: 042

REACTIONS (1)
  - Febrile neutropenia [None]
